FAERS Safety Report 4695215-1 (Version None)
Quarter: 2005Q2

REPORT INFORMATION
  Report Type: 
  Country: None (occurrence: None)
  Receive Date: 20050614
  Receipt Date: 20050113
  Transmission Date: 20051028
  Serious: No
  Sender: FDA-Public Use
  Company Number: USA041286126

PATIENT
  Age: 8 Month

DRUGS (5)
  1. CIALIS [Suspect]
     Indication: PULMONARY HYPERTENSION
  2. FUROSEMIDE [Concomitant]
  3. DIURIL (CHLOROTHIAZIDE) [Concomitant]
  4. SODIUM SUPPLEMENT [Concomitant]
  5. POTASSIUM CHLORIDE [Concomitant]

REACTIONS (1)
  - BLOOD POTASSIUM ABNORMAL [None]
